FAERS Safety Report 5233205-0 (Version None)
Quarter: 2007Q1

REPORT INFORMATION
  Report Type: 
  Country: None (occurrence: None)
  Receive Date: 20070207
  Receipt Date: 20070130
  Transmission Date: 20070707
  Serious: Yes (Other)
  Sender: FDA-Public Use
  Company Number: CA-PFIZER INC-2007008980

PATIENT
  Sex: Male

DRUGS (1)
  1. LIPITOR [Suspect]
     Route: 048

REACTIONS (3)
  - ACTIVITIES OF DAILY LIVING IMPAIRED [None]
  - CONFUSIONAL STATE [None]
  - MENTAL IMPAIRMENT [None]
